FAERS Safety Report 25810537 (Version 1)
Quarter: 2025Q3

REPORT INFORMATION
  Report Type: Spontaneous
  Country: US (occurrence: US)
  Receive Date: 20250917
  Receipt Date: 20250917
  Transmission Date: 20251020
  Serious: Yes (Hospitalization)
  Sender: BAUSCH AND LOMB
  Company Number: US-BAUSCH-BH-2025-017342

PATIENT
  Age: 22 Year
  Sex: Male

DRUGS (2)
  1. TETRABENAZINE [Suspect]
     Active Substance: TETRABENAZINE
     Indication: Product used for unknown indication
     Route: 065
  2. INGREZZA [Suspect]
     Active Substance: VALBENAZINE DITOSYLATE
     Indication: Tardive dyskinesia
     Route: 048
     Dates: start: 202507

REACTIONS (8)
  - Hospitalisation [Unknown]
  - Dyskinesia [Unknown]
  - Paranoia [Unknown]
  - Jaw disorder [Unknown]
  - Feeling abnormal [Unknown]
  - Staring [Unknown]
  - Sleep disorder [Unknown]
  - Hyperhidrosis [Unknown]
